FAERS Safety Report 12971331 (Version 1)
Quarter: 2016Q4

REPORT INFORMATION
  Report Type: Spontaneous
  Country: US (occurrence: US)
  Receive Date: 20161123
  Receipt Date: 20161123
  Transmission Date: 20170207
  Serious: No
  Sender: FDA-Public Use
  Company Number: US-JAZZ-2016-US-019749

PATIENT
  Sex: Female

DRUGS (8)
  1. XYREM [Suspect]
     Active Substance: SODIUM OXYBATE
     Dosage: 3 G, BID
     Route: 048
     Dates: start: 201606
  2. CANASA [Concomitant]
     Active Substance: MESALAMINE
  3. DOXEPIN [Concomitant]
     Active Substance: DOXEPIN
  4. AMBIEN [Concomitant]
     Active Substance: ZOLPIDEM TARTRATE
  5. PROVIGIL [Concomitant]
     Active Substance: MODAFINIL
  6. COLAZAL [Concomitant]
     Active Substance: BALSALAZIDE DISODIUM
  7. XYREM [Suspect]
     Active Substance: SODIUM OXYBATE
     Indication: NARCOLEPSY
     Dosage: 2.25 G, BID
     Route: 048
     Dates: start: 200606, end: 2006
  8. XYREM [Suspect]
     Active Substance: SODIUM OXYBATE
     Dosage: DOSE ADJUSTMENT
     Route: 048
     Dates: start: 200607, end: 2014

REACTIONS (2)
  - Urine calcium [Unknown]
  - Bone density abnormal [Unknown]
